FAERS Safety Report 4886835-X (Version None)
Quarter: 2006Q1

REPORT INFORMATION
  Report Type: 
  Country: None (occurrence: None)
  Receive Date: 20060120
  Receipt Date: 20051228
  Transmission Date: 20060701
  Serious: Yes (Disabling, Other)
  Sender: FDA-Public Use
  Company Number: DE-ABBOTT-05P-062-0320827-00

PATIENT
  Sex: Female

DRUGS (11)
  1. ERGENYL TABLETS [Suspect]
     Indication: AGGRESSION
     Route: 048
     Dates: start: 20051114, end: 20051122
  2. ERGENYL TABLETS [Suspect]
     Route: 048
     Dates: start: 20051123, end: 20051203
  3. ERGENYL TABLETS [Suspect]
     Route: 048
     Dates: start: 20051204, end: 20051216
  4. BIPERIDEN HYDROCHLORIDE TAB [Suspect]
     Indication: EXTRAPYRAMIDAL DISORDER
     Dates: start: 20051215, end: 20051216
  5. RISPERIDONE [Suspect]
     Indication: MENTAL DISORDER
     Route: 048
     Dates: start: 20051204
  6. RISPERIDONE [Suspect]
     Route: 048
     Dates: end: 20051216
  7. MIRTAZAPINE [Concomitant]
     Indication: DRUG USE FOR UNKNOWN INDICATION
     Route: 048
     Dates: start: 20051201, end: 20051201
  8. VENLAFAXINE HCL [Concomitant]
     Indication: DRUG USE FOR UNKNOWN INDICATION
     Dates: end: 20051115
  9. VENLAFAXINE HCL [Concomitant]
     Dates: start: 20051116, end: 20051122
  10. VENLAFAXINE HCL [Concomitant]
     Dates: start: 20051123, end: 20051129
  11. VENLAFAXINE HCL [Concomitant]
     Dates: start: 20051130, end: 20051204

REACTIONS (15)
  - ACTIVITIES OF DAILY LIVING IMPAIRED [None]
  - AFFECTIVE DISORDER [None]
  - AGGRESSION [None]
  - CONFUSIONAL STATE [None]
  - DELIRIUM [None]
  - DISORIENTATION [None]
  - DRUG INEFFECTIVE [None]
  - EXTRAPYRAMIDAL DISORDER [None]
  - FATIGUE [None]
  - IMPULSE-CONTROL DISORDER [None]
  - MUTISM [None]
  - PSYCHOMOTOR HYPERACTIVITY [None]
  - SELF INJURIOUS BEHAVIOUR [None]
  - SOMNOLENCE [None]
  - UNEVALUABLE EVENT [None]
